FAERS Safety Report 4553053-4 (Version None)
Quarter: 2005Q1

REPORT INFORMATION
  Report Type: 
  Country: None (occurrence: None)
  Receive Date: 20050114
  Receipt Date: 20041220
  Transmission Date: 20050727
  Serious: Yes (Other)
  Sender: FDA-Public Use
  Company Number: PHBS2004JP17151

PATIENT
  Sex: Female

DRUGS (5)
  1. LIVALO [Suspect]
     Dates: start: 20041019
  2. AMARYL [Concomitant]
     Dosage: 1 MG, UNK
     Route: 048
  3. ARTIST [Concomitant]
     Dosage: 10 MG, UNK
     Route: 048
  4. AMLODIN [Concomitant]
     Dosage: 5 MG, UNK
     Route: 048
  5. LOCHOL [Suspect]
     Indication: HYPERCHOLESTEROLAEMIA
     Route: 048
     Dates: start: 20040921, end: 20041018

REACTIONS (2)
  - AUTOIMMUNE THYROIDITIS [None]
  - BLOOD CREATINE PHOSPHOKINASE INCREASED [None]
